FAERS Safety Report 8717046 (Version 3)
Quarter: 2012Q4

REPORT INFORMATION
  Report Type: 
  Country: FR (occurrence: FR)
  Receive Date: 20120810
  Receipt Date: 20121026
  Transmission Date: 20130627
  Serious: Yes (Other)
  Sender: FDA-Public Use
  Company Number: FR-PFIZER INC-2012190961

PATIENT
  Age: 78 Year
  Sex: Male

DRUGS (4)
  1. CORDARONE [Suspect]
     Indication: ATRIAL FIBRILLATION
     Dosage: 200 mg, daily
     Route: 048
     Dates: start: 2010
  2. CORDARONE [Suspect]
     Dosage: 100 mg, daily
     Route: 048
     Dates: start: 201207
  3. FLECAINE [Concomitant]
     Dosage: UNK
  4. PERINDOPRIL [Concomitant]
     Dosage: UNK

REACTIONS (6)
  - Walking disability [Recovering/Resolving]
  - Hypothyroidism [Recovering/Resolving]
  - Tremor [Recovering/Resolving]
  - Hypoaesthesia [Recovering/Resolving]
  - Skin discolouration [Recovering/Resolving]
  - Electromyogram abnormal [Unknown]
